FAERS Safety Report 6347472-3 (Version None)
Quarter: 2009Q3

REPORT INFORMATION
  Report Type: 
  Country: None (occurrence: None)
  Receive Date: 20090908
  Receipt Date: 20090908
  Transmission Date: 20100115
  Serious: Yes (Hospitalization)
  Sender: FDA-Public Use
  Company Number: None

PATIENT
  Age: 54 Year
  Sex: Female
  Weight: 61.2356 kg

DRUGS (1)
  1. ZOLPIDEM [Suspect]
     Indication: INSOMNIA
     Dosage: 1 AT BEDTIME 1 PO
     Route: 048
     Dates: start: 20090724, end: 20090728

REACTIONS (8)
  - ABNORMAL BEHAVIOUR [None]
  - AGGRESSION [None]
  - AMNESIA [None]
  - FACE INJURY [None]
  - HALLUCINATION [None]
  - ROAD TRAFFIC ACCIDENT [None]
  - SLEEP-RELATED EATING DISORDER [None]
  - SOMNAMBULISM [None]
